FAERS Safety Report 18119466 (Version 1)
Quarter: 2020Q3

REPORT INFORMATION
  Report Type: Spontaneous
  Country: US (occurrence: US)
  Receive Date: 20200806
  Receipt Date: 20200806
  Transmission Date: 20201103
  Serious: No
  Sender: FDA-Public Use
  Company Number: US-BIOGEN-2014BI098075

PATIENT
  Age: 34 Year
  Sex: Male

DRUGS (3)
  1. TECFIDERA [Suspect]
     Active Substance: DIMETHYL FUMARATE
     Route: 065
     Dates: start: 20140801
  2. TECFIDERA [Suspect]
     Active Substance: DIMETHYL FUMARATE
     Indication: RELAPSING-REMITTING MULTIPLE SCLEROSIS
     Route: 048
     Dates: start: 20140805
  3. TECFIDERA [Suspect]
     Active Substance: DIMETHYL FUMARATE
     Route: 048
     Dates: start: 20140827

REACTIONS (8)
  - Urticaria [Unknown]
  - Retching [Recovered/Resolved]
  - Urticaria [Not Recovered/Not Resolved]
  - Vomiting [Not Recovered/Not Resolved]
  - Diarrhoea [Not Recovered/Not Resolved]
  - Abdominal pain upper [Not Recovered/Not Resolved]
  - Flushing [Unknown]
  - Rash pruritic [Not Recovered/Not Resolved]

NARRATIVE: CASE EVENT DATE: 201408
